FAERS Safety Report 4511228-4 (Version None)
Quarter: 2004Q4

REPORT INFORMATION
  Report Type: 
  Country: None (occurrence: None)
  Receive Date: 20041129
  Receipt Date: 20041117
  Transmission Date: 20050328
  Serious: Yes (Hospitalization, Other)
  Sender: FDA-Public Use
  Company Number: GB-JNJFOC-20041104691

PATIENT
  Sex: Female
  Weight: 59 kg

DRUGS (6)
  1. REMICADE [Suspect]
     Indication: RHEUMATOID ARTHRITIS
     Route: 042
  2. CO-CODAMOL [Concomitant]
  3. CO-CODAMOL [Concomitant]
  4. FOLIC ACID [Concomitant]
  5. PREDNISOLONE [Concomitant]
  6. ALENDRONATE SODIUM [Concomitant]

REACTIONS (1)
  - UPPER LIMB FRACTURE [None]
